FAERS Safety Report 15421197 (Version 1)
Quarter: 2018Q3

REPORT INFORMATION
  Report Type: Spontaneous
  Country: US (occurrence: US)
  Receive Date: 20180924
  Receipt Date: 20180924
  Transmission Date: 20181010
  Serious: No
  Sender: FDA-Public Use
  Company Number: US-ALLERGAN-1754395US

PATIENT
  Sex: Female

DRUGS (1)
  1. LINZESS [Suspect]
     Active Substance: LINACLOTIDE
     Indication: CONSTIPATION
     Dosage: 72 ?G, UNK
     Route: 065
     Dates: start: 20170917

REACTIONS (4)
  - Abdominal pain [Not Recovered/Not Resolved]
  - Therapeutic response decreased [Unknown]
  - Faeces hard [Not Recovered/Not Resolved]
  - Expired product administered [Unknown]
